FAERS Safety Report 4907590-0 (Version None)
Quarter: 2006Q1

REPORT INFORMATION
  Report Type: 
  Country: None (occurrence: None)
  Receive Date: 20060208
  Receipt Date: 20060127
  Transmission Date: 20060701
  Serious: Yes (Hospitalization)
  Sender: FDA-Public Use
  Company Number: GBWYE339527JAN06

PATIENT
  Age: 72 Year
  Sex: Male

DRUGS (5)
  1. RAPAMUNE [Suspect]
     Indication: RENAL TRANSPLANT
     Dosage: 2 MG 2X PER 1 DAY ORAL
     Route: 048
     Dates: start: 20050419
  2. MYCOPHENOLATE MOFETIL             (MYCOPHENOLATE MOFETIL) [Concomitant]
  3. PREDNISOLONE [Concomitant]
  4. COTRIM [Concomitant]
  5. FELODIPINE [Concomitant]

REACTIONS (7)
  - BLADDER OBSTRUCTION [None]
  - BLOOD CREATININE INCREASED [None]
  - CYSTITIS [None]
  - MALAISE [None]
  - PYREXIA [None]
  - URINE OUTPUT DECREASED [None]
  - VOMITING [None]
